FAERS Safety Report 6867665-6 (Version None)
Quarter: 2010Q3

REPORT INFORMATION
  Report Type: 
  Country: None (occurrence: None)
  Receive Date: 20100722
  Receipt Date: 20100219
  Transmission Date: 20110219
  Serious: No
  Sender: FDA-Public Use
  Company Number: US-BAUSCH-2010BL000998

PATIENT
  Age: 79 Year
  Sex: Female

DRUGS (3)
  1. OPCON-A [Suspect]
     Indication: DRY EYE
     Route: 047
     Dates: start: 20100205, end: 20100201
  2. OPCON-A [Suspect]
     Indication: LACRIMATION INCREASED
     Route: 047
     Dates: start: 20100205, end: 20100201
  3. AMBIEN [Concomitant]
     Indication: PRODUCT USED FOR UNKNOWN INDICATION
     Route: 048

REACTIONS (1)
  - EYE IRRITATION [None]
